FAERS Safety Report 21258587 (Version 3)
Quarter: 2022Q4

REPORT INFORMATION
  Report Type: Spontaneous
  Country: US (occurrence: US)
  Receive Date: 20220826
  Receipt Date: 20221021
  Transmission Date: 20230112
  Serious: No
  Sender: FDA-Public Use
  Company Number: US-PFIZER INC-202200050135

PATIENT
  Age: 79 Year
  Sex: Female

DRUGS (1)
  1. IBRANCE [Suspect]
     Active Substance: PALBOCICLIB
     Indication: Breast cancer female
     Dosage: 100 MG, CYCLIC(1 TABLET BY MOUTH ONCE DAILY ON DAY 1-21, THEN OFF 7 DAYS.REPEAT EVERY 28 DAY CYCLE)
     Route: 048
     Dates: start: 20220108

REACTIONS (2)
  - Illness [Not Recovered/Not Resolved]
  - Infection [Unknown]

NARRATIVE: CASE EVENT DATE: 20220101
